FAERS Safety Report 5418208-5 (Version None)
Quarter: 2007Q3

REPORT INFORMATION
  Report Type: 
  Country: None (occurrence: None)
  Receive Date: 20070817
  Receipt Date: 20070807
  Transmission Date: 20080115
  Serious: Yes (Other)
  Sender: FDA-Public Use
  Company Number: US-ROCHE-494894

PATIENT
  Age: 76 Year
  Sex: Female
  Weight: 73 kg

DRUGS (12)
  1. PEGASYS [Suspect]
     Route: 058
     Dates: start: 20070209, end: 20070416
  2. RIBAVIRIN [Suspect]
     Dosage: REPORTED TWO IN MORNING AND 3 IN PM
     Route: 048
     Dates: start: 20070209, end: 20070416
  3. PREVACID [Concomitant]
  4. ARTHROTEC [Concomitant]
  5. SINGULAIR [Concomitant]
  6. CLARINEX [Concomitant]
  7. BENICAR [Concomitant]
  8. DYAZIDE [Concomitant]
  9. NORVASC [Concomitant]
  10. COZAAR [Concomitant]
  11. FLONASE [Concomitant]
  12. RESTORIL [Concomitant]

REACTIONS (20)
  - ABDOMINAL PAIN UPPER [None]
  - ANAEMIA [None]
  - ARTHRALGIA [None]
  - ASTHENIA [None]
  - CHEST DISCOMFORT [None]
  - COUGH [None]
  - DIZZINESS [None]
  - DYSPNOEA [None]
  - EAR PAIN [None]
  - FATIGUE [None]
  - GASTROENTERITIS [None]
  - LEUKOPENIA [None]
  - NASAL CONGESTION [None]
  - NERVOUSNESS [None]
  - PRURITUS [None]
  - RASH [None]
  - RASH GENERALISED [None]
  - RHINORRHOEA [None]
  - SOMNOLENCE [None]
  - TREMOR [None]
